FAERS Safety Report 11032268 (Version 1)
Quarter: 2015Q2

REPORT INFORMATION
  Report Type: Report from Study
  Country: US (occurrence: US)
  Receive Date: 20150415
  Receipt Date: 20150415
  Transmission Date: 20150821
  Serious: Yes (Other)
  Sender: FDA-Public Use
  Company Number: US-GLAXOSMITHKLINE-US2015GSK051000

PATIENT
  Sex: Female

DRUGS (1)
  1. ACITRETIN. [Suspect]
     Active Substance: ACITRETIN
     Indication: PRODUCT USED FOR UNKNOWN INDICATION
     Dosage: UNK, U
     Route: 065

REACTIONS (3)
  - Treatment noncompliance [Unknown]
  - Oophorectomy bilateral [Recovered/Resolved]
  - Hysterectomy [Recovered/Resolved]

NARRATIVE: CASE EVENT DATE: 201103
